FAERS Safety Report 7763930-9 (Version None)
Quarter: 2011Q3

REPORT INFORMATION
  Report Type: 
  Country: None (occurrence: None)
  Receive Date: 20110916
  Receipt Date: 20110907
  Transmission Date: 20111222
  Serious: Yes (Life-Threatening, Disabling)
  Sender: FDA-Public Use
  Company Number: OSCN-NO-1107L-0164

PATIENT
  Age: 58 Year
  Sex: Male
  Weight: 74.3 kg

DRUGS (3)
  1. OMNISCAN [Suspect]
     Indication: HEPATIC NEOPLASM MALIGNANT
     Dosage: 15 ML, SINGLE DOSE ; 15 ML, SINGLE DOSE ; 15 ML, SINGLE DOSE ; 30 ML ,SINGLE DOSE
  2. OMNISCAN [Suspect]
     Indication: CEREBROVASCULAR ACCIDENT
     Dosage: 15 ML, SINGLE DOSE ; 15 ML, SINGLE DOSE ; 15 ML, SINGLE DOSE ; 30 ML ,SINGLE DOSE
  3. ERYTHROPOIETIN (ERYTHROPOIETIN) [Concomitant]

REACTIONS (6)
  - AZOTAEMIA [None]
  - NEPHROGENIC SYSTEMIC FIBROSIS [None]
  - OEDEMA PERIPHERAL [None]
  - ANAEMIA [None]
  - BLOOD ALKALINE PHOSPHATASE INCREASED [None]
  - HYPOALBUMINAEMIA [None]
